FAERS Safety Report 10720398 (Version 1)
Quarter: 2015Q1

REPORT INFORMATION
  Report Type: Spontaneous
  Country: US (occurrence: US)
  Receive Date: 20150119
  Receipt Date: 20150119
  Transmission Date: 20150721
  Serious: No
  Sender: FDA-Public Use
  Company Number: US-UNITED THERAPEUTICS-UNT-2014-007414

PATIENT
  Age: 62 Year
  Sex: Male
  Weight: 69.84 kg

DRUGS (1)
  1. TYVASO [Suspect]
     Active Substance: TREPROSTINIL
     Indication: COR PULMONALE CHRONIC
     Dosage: 18 ?G, QID
     Dates: start: 20140908

REACTIONS (10)
  - Eye pain [Unknown]
  - Pain in jaw [Unknown]
  - Dizziness [Unknown]
  - Dysphemia [Unknown]
  - Face oedema [Not Recovered/Not Resolved]
  - Dyspnoea [Unknown]
  - Asthenia [Unknown]
  - Localised oedema [Not Recovered/Not Resolved]
  - Myalgia [Unknown]
  - Fatigue [Unknown]

NARRATIVE: CASE EVENT DATE: 201409
